FAERS Safety Report 4514088-0 (Version None)
Quarter: 2004Q4

REPORT INFORMATION
  Report Type: 
  Country: None (occurrence: None)
  Receive Date: 20041124
  Receipt Date: 20041104
  Transmission Date: 20050328
  Serious: Yes (Death)
  Sender: FDA-Public Use
  Company Number: USA041183336

PATIENT
  Age: 42 Year
  Sex: Female

DRUGS (4)
  1. CYMBALTA [Suspect]
     Indication: DEPRESSION
     Dosage: 60 MG/1 DAY
  2. ZOFRAN [Concomitant]
  3. DURAGESIC [Concomitant]
  4. PHENERGEN (PROMETHAZINE) [Concomitant]

REACTIONS (1)
  - DEATH [None]
